FAERS Safety Report 4348157-5 (Version None)
Quarter: 2004Q1

REPORT INFORMATION
  Report Type: 
  Country: None (occurrence: None)
  Receive Date: 20040325
  Receipt Date: 20031204
  Transmission Date: 20041129
  Serious: No
  Sender: FDA-Public Use
  Company Number: USA031254006

PATIENT
  Age: 88 Year
  Sex: Female
  Weight: 53 kg

DRUGS (7)
  1. FORTEO [Suspect]
     Indication: SPINAL FRACTURE
     Dates: start: 20030801
  2. ATENOLOL [Concomitant]
  3. AVAPRO [Concomitant]
  4. ACCUPRIL [Concomitant]
  5. NORVASC [Concomitant]
  6. TORSEMIDE [Concomitant]
  7. LIPITOR [Concomitant]

REACTIONS (3)
  - BLOOD TEST ABNORMAL [None]
  - DEHYDRATION [None]
  - POSTMENOPAUSAL HAEMORRHAGE [None]
